FAERS Safety Report 16273951 (Version 1)
Quarter: 2019Q2

REPORT INFORMATION
  Report Type: Spontaneous
  Country: US (occurrence: US)
  Receive Date: 20190506
  Receipt Date: 20190506
  Transmission Date: 20190711
  Serious: No
  Sender: FDA-Public Use
  Company Number: US-AUROBINDO-AUR-APL-2019-011878

PATIENT

DRUGS (2)
  1. ESOMEPRAZOLE MAGNESIUM DELAYED-RELEASE CAPSULES USP 20 MG [Suspect]
     Active Substance: ESOMEPRAZOLE MAGNESIUM
     Indication: GASTROOESOPHAGEAL REFLUX DISEASE
  2. ESOMEPRAZOLE MAGNESIUM DELAYED-RELEASE CAPSULES USP 20 MG [Suspect]
     Active Substance: ESOMEPRAZOLE MAGNESIUM
     Indication: DYSPEPSIA
     Dosage: 1 CAPSULE PER DAY
     Route: 065
     Dates: start: 20190209, end: 20190225

REACTIONS (4)
  - Drug ineffective [Unknown]
  - Dyspepsia [Recovered/Resolved]
  - Gastrooesophageal reflux disease [Recovered/Resolved]
  - Product substitution issue [Unknown]
